FAERS Safety Report 6647124-6 (Version None)
Quarter: 2010Q1

REPORT INFORMATION
  Report Type: 
  Country: None (occurrence: None)
  Receive Date: 20100322
  Receipt Date: 20100322
  Transmission Date: 20100710
  Serious: Yes (Hospitalization)
  Sender: FDA-Public Use
  Company Number: None

PATIENT
  Age: 92 Year
  Sex: Male

DRUGS (1)
  1. CEPHALEXIN [Suspect]
     Indication: CELLULITIS
     Dosage: 500 MG QID
     Dates: start: 20100212, end: 20100214

REACTIONS (4)
  - ANGIOEDEMA [None]
  - BRADYCARDIA [None]
  - CELLULITIS [None]
  - RASH [None]
